FAERS Safety Report 8937312 (Version 1)
Quarter: 2012Q4

REPORT INFORMATION
  Report Type: 
  Country: US (occurrence: US)
  Receive Date: 20121203
  Receipt Date: 20121203
  Transmission Date: 20130627
  Serious: Yes (Other)
  Sender: FDA-Public Use
  Company Number: US-ROXANE LABORATORIES, INC.-2012-RO-02463RO

PATIENT
  Age: 74 Year
  Sex: Male

DRUGS (3)
  1. CLOPIDOGREL [Suspect]
     Indication: CORONARY ARTERY DISEASE
     Dosage: 75 mg
     Dates: start: 20020807, end: 2010
  2. CLOPIDOGREL [Suspect]
     Dosage: 150 mg
     Dates: start: 20100424, end: 20100504
  3. ASPIRIN [Suspect]
     Indication: CORONARY ARTERY DISEASE
     Dosage: 325 mg
     Dates: start: 1988

REACTIONS (3)
  - Drug resistance [Unknown]
  - Coronary artery stenosis [Recovered/Resolved]
  - Coronary artery restenosis [Recovered/Resolved]
